FAERS Safety Report 9143105 (Version 1)
Quarter: 2013Q1

REPORT INFORMATION
  Report Type: Spontaneous
  Country: FR (occurrence: FR)
  Receive Date: 20130306
  Receipt Date: 20130306
  Transmission Date: 20140127
  Serious: Yes (Hospitalization)
  Sender: FDA-Public Use
  Company Number: FR-009507513-1302FRA013331

PATIENT
  Age: 63 Year
  Sex: Male
  Weight: 140 kg

DRUGS (11)
  1. VICTRELIS [Suspect]
     Indication: HEPATITIS C
     Dosage: 800 MG, TID
     Route: 048
     Dates: start: 20120224, end: 20121220
  2. COPEGUS [Suspect]
     Indication: HEPATITIS C
     Dosage: 600 MG, QD
     Route: 048
     Dates: start: 20120906, end: 20121220
  3. PEGASYS [Suspect]
     Indication: HEPATITIS C
     Dosage: 180 MICROGRAM, QW
     Dates: start: 20120127, end: 20121220
  4. ESOMEPRAZOLE [Concomitant]
     Indication: PRODUCT USED FOR UNKNOWN INDICATION
     Dosage: 40 MG, QD
  5. ACETAMINOPHEN [Concomitant]
     Indication: PROPHYLAXIS
     Dosage: 1 G, TID
  6. LASILIX [Concomitant]
     Indication: OEDEMA
     Dosage: 500 MG, UNK
  7. ATACAND [Concomitant]
     Indication: CARDIAC FAILURE
     Dosage: 16 MG, QD
  8. DAIVOBET [Concomitant]
     Indication: PRODUCT USED FOR UNKNOWN INDICATION
     Dosage: 0.5 MG, QD
  9. DEXERYL CREAM [Concomitant]
     Indication: DRY SKIN PROPHYLAXIS
     Dosage: 1 UNK, UNK
  10. LEVEMIR [Concomitant]
     Indication: DIABETES MELLITUS
     Dosage: 90 IU, QD
  11. NOVORAPID [Concomitant]
     Indication: DIABETES MELLITUS
     Dosage: 70 IU, QD

REACTIONS (1)
  - Diabetes mellitus inadequate control [Recovered/Resolved]
